FAERS Safety Report 6883582-X (Version None)
Quarter: 2010Q3

REPORT INFORMATION
  Report Type: 
  Country: None (occurrence: None)
  Receive Date: 20100729
  Receipt Date: 20100723
  Transmission Date: 20110219
  Serious: Yes (Life-Threatening)
  Sender: FDA-Public Use
  Company Number: IT-BRISTOL-MYERS SQUIBB COMPANY-15205800

PATIENT
  Age: 72 Year
  Sex: Male

DRUGS (5)
  1. SPRYCEL [Suspect]
     Indication: CHRONIC MYELOID LEUKAEMIA
     Route: 048
     Dates: start: 20100415, end: 20100427
  2. ASPIRIN [Concomitant]
     Indication: PLATELET AGGREGATION INHIBITION
     Dosage: STR 100 MG
     Route: 048
     Dates: start: 20100101, end: 20100424
  3. ALLOPURINOL [Concomitant]
     Indication: HYPERURICAEMIA
     Dosage: 50 MG TABS
     Route: 048
     Dates: start: 20100101, end: 20100424
  4. DILATREND [Concomitant]
     Indication: HYPERTENSION
     Dosage: 6.25 TABS.
     Route: 048
     Dates: start: 20100101, end: 20100424
  5. EUTIROX [Concomitant]
     Indication: HYPOTHYROIDISM
     Route: 048
     Dates: start: 20100101, end: 20100424

REACTIONS (3)
  - FUNGAL INFECTION [None]
  - PNEUMONIA [None]
  - RESPIRATORY FAILURE [None]
